FAERS Safety Report 7987674-3 (Version None)
Quarter: 2011Q4

REPORT INFORMATION
  Report Type: 
  Country: None (occurrence: None)
  Receive Date: 20111216
  Receipt Date: 20111213
  Transmission Date: 20120403
  Serious: Yes (Death, Life-Threatening)
  Sender: FDA-Public Use
  Company Number: JP-ABBOTT-11P-087-0863717-00

PATIENT
  Sex: Male
  Weight: 82 kg

DRUGS (23)
  1. CELMANIL [Interacting]
     Indication: SCHIZOPHRENIA
     Dosage: 17 - 25 MG TID
     Route: 048
     Dates: start: 20070619, end: 20070628
  2. PHENOBARBITAL TAB [Interacting]
     Indication: SCHIZOPHRENIA
     Dosage: 30 - 80 MG BID
     Route: 048
     Dates: start: 20070620, end: 20070628
  3. LEVOMEPROMAZINE [Interacting]
     Indication: SCHIZOPHRENIA
     Dosage: 30 - 60 MG BID
     Route: 048
     Dates: start: 20070619, end: 20070628
  4. LEVOTOMIN [Interacting]
     Indication: SCHIZOPHRENIA
     Dosage: AT THE OCCURRENCE OF INSOMNIA
     Route: 042
     Dates: start: 20070619, end: 20070628
  5. VALPROIC ACID [Interacting]
     Indication: SCHIZOPHRENIA
     Route: 048
     Dates: start: 20070625, end: 20070628
  6. TOLOPELON [Interacting]
     Indication: SCHIZOPHRENIA
     Route: 042
     Dates: start: 20070619, end: 20070628
  7. SENNOSIDE [Concomitant]
     Indication: CONSTIPATION
     Dosage: PER
     Route: 048
     Dates: start: 20070626
  8. MAGNESIUM SULFATE [Concomitant]
     Indication: CONSTIPATION
     Route: 048
     Dates: start: 20070626
  9. PANTOSIN [Concomitant]
     Indication: CONSTIPATION
     Route: 048
     Dates: start: 20070626
  10. RISPERDAL [Interacting]
     Indication: SCHIZOPHRENIA
     Dosage: 6 - 10MG TID
     Route: 048
     Dates: start: 20070619, end: 20070628
  11. TEGRETOL [Interacting]
     Indication: SCHIZOPHRENIA
     Dosage: 700 - 1200 MG TID
     Route: 048
     Dates: start: 20070620, end: 20070628
  12. PROMETHAZINE HCL [Interacting]
     Indication: SCHIZOPHRENIA
     Dosage: 100 - 210 MG TID
     Route: 048
     Dates: start: 20070619, end: 20070628
  13. DORAL [Interacting]
     Indication: SCHIZOPHRENIA
     Route: 048
     Dates: start: 20070627, end: 20070628
  14. LAXOBERON [Concomitant]
     Indication: CONSTIPATION
     Dosage: AT THE OCCURENCE OF CONSTIPATION
     Route: 048
     Dates: start: 20070626
  15. SEROQUEL [Interacting]
     Indication: SCHIZOPHRENIA
     Route: 048
     Dates: start: 20070619, end: 20070628
  16. SLOWHEIM [Interacting]
     Indication: SCHIZOPHRENIA
     Route: 048
     Dates: start: 20070627, end: 20070628
  17. NITRAZEPAM [Interacting]
     Indication: INSOMNIA
     Dosage: 0.8-1.0 GRAMS BID
     Route: 048
     Dates: start: 20070627, end: 20070628
  18. CLARITHROMYCIN [Suspect]
     Indication: PNEUMONIA
     Route: 048
     Dates: start: 20070622, end: 20070628
  19. HALOPERIDOL [Interacting]
     Indication: SCHIZOPHRENIA
     Route: 042
     Dates: start: 20070620, end: 20070628
  20. MUCOTRON [Concomitant]
     Indication: PNEUMONIA
     Route: 048
     Dates: start: 20070622, end: 20070628
  21. ZYPREXA [Interacting]
     Indication: SCHIZOPHRENIA
     Dosage: AT THE OCCURRENCE OF INSOMNIA
     Route: 048
  22. PROMAZINE HYDROCHLORIDE [Interacting]
     Indication: SCHIZOPHRENIA
     Dosage: 100 - 150 MG TID
     Route: 048
     Dates: start: 20070623, end: 20070628
  23. LODOPIN [Interacting]
     Indication: SCHIZOPHRENIA
     Route: 048
     Dates: start: 20070625, end: 20070628

REACTIONS (6)
  - ILEUS PARALYTIC [None]
  - RESPIRATORY DEPRESSION [None]
  - POSTRESUSCITATION ENCEPHALOPATHY [None]
  - DRUG INTERACTION [None]
  - CARDIO-RESPIRATORY ARREST [None]
  - SEPSIS [None]
